FAERS Safety Report 20545506 (Version 1)
Quarter: 2022Q1

REPORT INFORMATION
  Report Type: Spontaneous
  Country: MY (occurrence: MY)
  Receive Date: 20220303
  Receipt Date: 20220303
  Transmission Date: 20220423
  Serious: Yes (Other)
  Sender: FDA-Public Use
  Company Number: MY-NEBO-PC008064

PATIENT
  Age: 17 Year
  Sex: Female

DRUGS (1)
  1. IRON ISOMALTOSIDE 1000 [Suspect]
     Active Substance: IRON ISOMALTOSIDE 1000
     Indication: Product used for unknown indication
     Route: 042
     Dates: start: 20201031

REACTIONS (3)
  - Type 2 diabetes mellitus [Not Recovered/Not Resolved]
  - Product administered to patient of inappropriate age [Unknown]
  - Product use issue [Unknown]

NARRATIVE: CASE EVENT DATE: 20201031
